FAERS Safety Report 25602200 (Version 8)
Quarter: 2025Q4

REPORT INFORMATION
  Report Type: Spontaneous
  Country: US (occurrence: US)
  Receive Date: 20250724
  Receipt Date: 20251016
  Transmission Date: 20260117
  Serious: No
  Sender: PFIZER
  Company Number: US-PFIZER INC-202500147576

PATIENT
  Age: 10 Year
  Sex: Male
  Weight: 29.478 kg

DRUGS (2)
  1. GENOTROPIN [Suspect]
     Active Substance: SOMATROPIN
     Indication: Blood growth hormone abnormal
     Dosage: 1 MG, DAILY, 7 DAYS/WEEK
     Route: 058
     Dates: start: 20250708
  2. LUPRON [Concomitant]
     Active Substance: LEUPROLIDE ACETATE
     Dosage: 11.25 MG
     Route: 030

REACTIONS (5)
  - Drug dose omission by device [Unknown]
  - Device leakage [Unknown]
  - Device issue [Unknown]
  - Device mechanical issue [Unknown]
  - Device use error [Unknown]

NARRATIVE: CASE EVENT DATE: 20250719
